FAERS Safety Report 4585543-2 (Version None)
Quarter: 2005Q1

REPORT INFORMATION
  Report Type: 
  Country: None (occurrence: None)
  Receive Date: 20050214
  Receipt Date: 20050203
  Transmission Date: 20050727
  Serious: Yes (Death, Other)
  Sender: FDA-Public Use
  Company Number: HQWYE134407FEB05

PATIENT
  Age: 63 Year
  Sex: Female
  Weight: 79.9 kg

DRUGS (2)
  1. PREMARIN [Suspect]
     Indication: MENOPAUSE
     Dosage: 0.625MG ONCE DAILY, ORAL
     Route: 048
     Dates: start: 19840101
  2. TENORETIC 100 [Concomitant]

REACTIONS (3)
  - BREAST CANCER [None]
  - PAIN IN EXTREMITY [None]
  - REFUSAL OF TREATMENT BY PATIENT [None]
